FAERS Safety Report 22024747 (Version 1)
Quarter: 2023Q1

REPORT INFORMATION
  Report Type: Spontaneous
  Country: US (occurrence: US)
  Receive Date: 20230223
  Receipt Date: 20230223
  Transmission Date: 20230418
  Serious: No
  Sender: FDA-Public Use
  Company Number: US-ELI_LILLY_AND_COMPANY-US202302010498

PATIENT
  Sex: Female

DRUGS (2)
  1. TRULICITY [Suspect]
     Active Substance: DULAGLUTIDE
     Indication: Product used for unknown indication
     Dosage: 1.5 MG, UNKNOWN
     Route: 058
     Dates: start: 202212
  2. TRULICITY [Suspect]
     Active Substance: DULAGLUTIDE
     Dosage: 1.5 MG, UNKNOWN
     Route: 058

REACTIONS (8)
  - Dysgeusia [Unknown]
  - Incorrect dose administered [Unknown]
  - Injection site haemorrhage [Unknown]
  - Feeding disorder [Unknown]
  - Chest discomfort [Unknown]
  - Vomiting [Unknown]
  - Nausea [Recovering/Resolving]
  - Constipation [Recovering/Resolving]
